FAERS Safety Report 6781122-7 (Version None)
Quarter: 2010Q2

REPORT INFORMATION
  Report Type: 
  Country: None (occurrence: None)
  Receive Date: 20100617
  Receipt Date: 20100617
  Transmission Date: 20101027
  Serious: Yes (Life-Threatening, Hospitalization)
  Sender: FDA-Public Use
  Company Number: None

PATIENT
  Age: 61 Year
  Sex: Male
  Weight: 99.7913 kg

DRUGS (8)
  1. TRAZODONE HCL [Suspect]
     Indication: SLEEP DISORDER
     Dosage: 25 OR 50 MG QHS PRN SLEEP PO
     Route: 048
     Dates: start: 20100429, end: 20100510
  2. LISINOPRIL [Concomitant]
  3. LOVASTATIN [Concomitant]
  4. ASPIRIN [Concomitant]
  5. PLAVIX [Concomitant]
  6. ZANTAC [Concomitant]
  7. SORIATANE [Concomitant]
  8. TRIAMCIHOLONE OINTMENT [Concomitant]

REACTIONS (7)
  - CONDITION AGGRAVATED [None]
  - DEHYDRATION [None]
  - HAEMODYNAMIC INSTABILITY [None]
  - PSORIASIS [None]
  - PUSTULAR PSORIASIS [None]
  - RENAL FAILURE [None]
  - STEVENS-JOHNSON SYNDROME [None]
